FAERS Safety Report 6450580-X (Version None)
Quarter: 2009Q4

REPORT INFORMATION
  Report Type: 
  Country: None (occurrence: None)
  Receive Date: 20091123
  Receipt Date: 20091119
  Transmission Date: 20100525
  Serious: Yes (Life-Threatening)
  Sender: FDA-Public Use
  Company Number: BE-ASTRAZENECA-2009SE27643

PATIENT
  Age: 63 Year
  Sex: Female

DRUGS (5)
  1. NAROPIN [Suspect]
     Dates: start: 20090923, end: 20090924
  2. DAFALGAN [Concomitant]
  3. IBITAN [Concomitant]
  4. DOLZAM [Concomitant]
  5. CEFACIDAL [Concomitant]

REACTIONS (3)
  - ACUTE RESPIRATORY DISTRESS SYNDROME [None]
  - HYPOTENSION [None]
  - PULMONARY OEDEMA [None]
